FAERS Safety Report 9596692 (Version 2)
Quarter: 2013Q4

REPORT INFORMATION
  Report Type: Spontaneous
  Country: US (occurrence: US)
  Receive Date: 20131004
  Receipt Date: 20131202
  Transmission Date: 20140711
  Serious: Yes (Hospitalization)
  Sender: FDA-Public Use
  Company Number: US-GLAXOSMITHKLINE-A1044171A

PATIENT
  Age: 54 Year
  Sex: Male
  Weight: 91.8 kg

DRUGS (6)
  1. VENTOLIN [Suspect]
     Indication: CHRONIC OBSTRUCTIVE PULMONARY DISEASE
     Dates: start: 20110715
  2. ALBUTEROL [Concomitant]
  3. SINGULAIR [Concomitant]
  4. FIORICET [Concomitant]
  5. SOMA [Concomitant]
  6. REGLAN [Concomitant]

REACTIONS (5)
  - Mechanical ventilation [Recovered/Resolved]
  - Respiratory failure [Recovered/Resolved]
  - Chronic obstructive pulmonary disease [Recovered/Resolved]
  - Bronchitis [Recovered/Resolved]
  - Pneumonia staphylococcal [Recovered/Resolved]
